FAERS Safety Report 6310077-4 (Version None)
Quarter: 2009Q3

REPORT INFORMATION
  Report Type: 
  Country: None (occurrence: None)
  Receive Date: 20090811
  Receipt Date: 20090728
  Transmission Date: 20100115
  Serious: Yes (Other)
  Sender: FDA-Public Use
  Company Number: HA09-057-AE

PATIENT
  Age: 37 Year
  Sex: Female

DRUGS (13)
  1. IBUPROFEN (UNKNOWN MANUFACTURER) [Suspect]
     Dates: end: 20090424
  2. INTERFERON BETA-1A [Concomitant]
  3. CYMBALTA [Concomitant]
  4. GABAPENTIN [Concomitant]
  5. SYNTHROID [Concomitant]
  6. AMBIEN [Concomitant]
  7. DULCOLAX [Concomitant]
  8. IBUPROFEN [Concomitant]
  9. DULOXETINE HYDROCHLORIDE [Concomitant]
  10. GABAPENTIN [Concomitant]
  11. LEVOTHYROXINE [Concomitant]
  12. ZOLPIDEM [Concomitant]
  13. BISACODYL [Concomitant]

REACTIONS (2)
  - AUTOIMMUNE HEPATITIS [None]
  - HEPATIC NECROSIS [None]
